FAERS Safety Report 8587745-7 (Version None)
Quarter: 2012Q3

REPORT INFORMATION
  Report Type: 
  Country: None (occurrence: None)
  Receive Date: 20120813
  Receipt Date: 20120802
  Transmission Date: 20120928
  Serious: Yes (Other)
  Sender: FDA-Public Use
  Company Number: CO-AMGEN-COLSP2012049687

PATIENT
  Age: 44 Year
  Sex: Female

DRUGS (5)
  1. LEFLUNOMIDE [Concomitant]
     Indication: RHEUMATOID ARTHRITIS
     Dosage: 20 MG, 1X/DAY
     Route: 048
     Dates: start: 20110101
  2. MEDROL [Concomitant]
     Indication: RHEUMATOID ARTHRITIS
     Dosage: 4 MG, 2X/DAY
     Route: 048
  3. METOPROLOL TARTRATE [Concomitant]
     Dosage: 50 MG, UNK
     Route: 065
  4. ENBREL [Suspect]
     Indication: RHEUMATOID ARTHRITIS
     Dosage: 50 MG, WEEKLY
     Route: 058
     Dates: start: 20110101
  5. MELOXICAM [Concomitant]
     Indication: PAIN
     Dosage: UNK
     Route: 048

REACTIONS (7)
  - URINARY TRACT INFECTION [None]
  - GENITAL DISCHARGE [None]
  - DRUG DOSE OMISSION [None]
  - PRODUCT QUALITY ISSUE [None]
  - INJECTION SITE ERYTHEMA [None]
  - INFLUENZA [None]
  - INJECTION SITE URTICARIA [None]
